FAERS Safety Report 11771245 (Version 3)
Quarter: 2015Q4

REPORT INFORMATION
  Report Type: Spontaneous
  Country: PL (occurrence: PL)
  Receive Date: 20151124
  Receipt Date: 20151211
  Transmission Date: 20160304
  Serious: Yes (Other)
  Sender: FDA-Public Use
  Company Number: PL-ROCHE-1664038

PATIENT
  Sex: Female

DRUGS (5)
  1. PACLITAXEL. [Concomitant]
     Active Substance: PACLITAXEL
     Route: 065
     Dates: start: 20140422
  2. CARBOPLATIN. [Concomitant]
     Active Substance: CARBOPLATIN
     Indication: OVARIAN CANCER
     Dosage: AUC 5
     Route: 065
     Dates: start: 20141125, end: 2015
  3. AVASTIN [Suspect]
     Active Substance: BEVACIZUMAB
     Indication: OVARIAN CANCER
     Route: 065
     Dates: start: 20141125, end: 2015
  4. CARBOPLATIN. [Concomitant]
     Active Substance: CARBOPLATIN
     Route: 065
     Dates: start: 20140331
  5. PACLITAXEL. [Concomitant]
     Active Substance: PACLITAXEL
     Indication: OVARIAN CANCER
     Route: 065
     Dates: start: 20141125, end: 2015

REACTIONS (9)
  - Metastasis [Unknown]
  - Hepatic steatosis [Unknown]
  - Hepatotoxicity [Unknown]
  - Toothache [Unknown]
  - Blood pressure increased [Recovered/Resolved]
  - Periodontitis [Unknown]
  - Metastases to liver [Unknown]
  - Polyneuropathy [Recovered/Resolved]
  - Gingival swelling [Unknown]

NARRATIVE: CASE EVENT DATE: 2015
